FAERS Safety Report 7079744-1 (Version None)
Quarter: 2010Q4

REPORT INFORMATION
  Report Type: 
  Country: None (occurrence: None)
  Receive Date: 20101102
  Receipt Date: 20101029
  Transmission Date: 20110411
  Serious: Yes (Other)
  Sender: FDA-Public Use
  Company Number: PHHY2010FI69617

PATIENT
  Sex: Female

DRUGS (4)
  1. SANDOSTATIN LAR [Suspect]
     Indication: METASTASES TO LYMPH NODES
     Dosage: 20 MG / 4 WEEKS
     Route: 030
     Dates: start: 20060601, end: 20070501
  2. SANDOSTATIN LAR [Suspect]
     Dosage: 20 MG ONCE A MONTH
     Route: 030
     Dates: start: 20080201
  3. SANDOSTATIN LAR [Suspect]
     Dosage: 30 MG TWO TIMES A MONTH
     Route: 030
  4. INTRON A [Concomitant]
     Dosage: 5 MILLION UNITS THREE TIMES A WEEK
     Dates: end: 20090201

REACTIONS (7)
  - 5-HYDROXYINDOLACETIC ACID IN URINE INCREASED [None]
  - ABDOMINAL PAIN [None]
  - ARTHRALGIA [None]
  - BLOOD CHROMOGRANIN A INCREASED [None]
  - MALIGNANT NEOPLASM PROGRESSION [None]
  - METASTASES TO LIVER [None]
  - RHEUMATOID ARTHRITIS [None]
